FAERS Safety Report 5779484-2 (Version None)
Quarter: 2008Q2

REPORT INFORMATION
  Report Type: 
  Country: None (occurrence: None)
  Receive Date: 20080619
  Receipt Date: 20080606
  Transmission Date: 20081010
  Serious: Yes (Other)
  Sender: FDA-Public Use
  Company Number: DE-ELI_LILLY_AND_COMPANY-DE200806001988

PATIENT
  Sex: Female
  Weight: 80 kg

DRUGS (4)
  1. CYMBALTA [Suspect]
     Indication: DEPRESSION
     Dosage: 30 MG, ONCE
     Route: 048
     Dates: start: 20080514, end: 20080514
  2. AMITRIPTYLINE HCL [Concomitant]
     Dosage: 10 MG, DAILY (1/D)
     Route: 048
  3. BISOPROLOL FUMARATE [Concomitant]
     Dosage: 8.5 MG, DAILY (1/D)
     Route: 048
  4. EUTHYROX [Concomitant]
     Dosage: 50 MG, DAILY (1/D)
     Route: 048

REACTIONS (1)
  - RASH [None]
